FAERS Safety Report 4619282-6 (Version None)
Quarter: 2005Q2

REPORT INFORMATION
  Report Type: 
  Country: None (occurrence: None)
  Receive Date: 20050321
  Receipt Date: 20040203
  Transmission Date: 20051028
  Serious: Yes (Other)
  Sender: FDA-Public Use
  Company Number: 2004-02-0117

PATIENT
  Age: 55 Year
  Sex: Male
  Weight: 95.2554 kg

DRUGS (6)
  1. PEG-INTRON [Suspect]
     Indication: HEPATITIS C VIRUS
     Dosage: 150 MCG QW, SUBCUTANEOUS
     Route: 058
     Dates: start: 20031031, end: 20040107
  2. REBETOL [Suspect]
     Indication: HEPATITIS C VIRUS
     Dosage: 1200 MG QD ORAL
     Route: 048
     Dates: start: 20031031, end: 20040107
  3. PROTONIX [Concomitant]
  4. TRIAZOLAM [Concomitant]
  5. GLUCOSAMINE/CHONDROITIN [Concomitant]
  6. MULTIVITAMIN [Concomitant]

REACTIONS (4)
  - DEPRESSION SUICIDAL [None]
  - MALAISE [None]
  - SKIN DISCOLOURATION [None]
  - SKIN DISORDER [None]
